FAERS Safety Report 6602737-2 (Version None)
Quarter: 2010Q1

REPORT INFORMATION
  Report Type: 
  Country: None (occurrence: None)
  Receive Date: 20100218
  Receipt Date: 20100205
  Transmission Date: 20100710
  Serious: Yes (Other)
  Sender: FDA-Public Use
  Company Number: 006478

PATIENT
  Age: 45 Year
  Sex: Male

DRUGS (1)
  1. PREDNISOLONE [Suspect]
     Dosage: 25-40MG DAILY DOSE, REDUCED DOSE AT 25MG DAILY
     Dates: start: 20070901

REACTIONS (8)
  - ASTHMA [None]
  - CONDITION AGGRAVATED [None]
  - DYSPNOEA [None]
  - ECONOMIC PROBLEM [None]
  - OSTEOPOROSIS [None]
  - SCIATICA [None]
  - SPINAL DISORDER [None]
  - WEIGHT INCREASED [None]
